FAERS Safety Report 25198456 (Version 1)
Quarter: 2025Q2

REPORT INFORMATION
  Report Type: Spontaneous
  Country: US (occurrence: US)
  Receive Date: 20250415
  Receipt Date: 20250415
  Transmission Date: 20250716
  Serious: No
  Sender: BRACCO
  Company Number: US-BRACCO-2025US01569

PATIENT
  Age: 34 Year
  Sex: Female

DRUGS (1)
  1. VUEWAY [Suspect]
     Active Substance: GADOPICLENOL
     Indication: Magnetic resonance imaging pelvic
     Route: 042
     Dates: start: 20250225, end: 20250225

REACTIONS (4)
  - Chest pain [Recovered/Resolved]
  - Swelling [Recovered/Resolved]
  - Peripheral coldness [Recovered/Resolved]
  - Limb discomfort [Recovered/Resolved]

NARRATIVE: CASE EVENT DATE: 20250225
